FAERS Safety Report 8094181-9 (Version None)
Quarter: 2012Q1

REPORT INFORMATION
  Report Type: 
  Country: None (occurrence: None)
  Receive Date: 20120130
  Receipt Date: 20120130
  Transmission Date: 20120608
  Serious: No
  Sender: FDA-Public Use
  Company Number: None

PATIENT
  Age: 52 Year
  Sex: Female
  Weight: 76.203 kg

DRUGS (2)
  1. ZOLPIDEM TARTRATE [Suspect]
     Indication: FIBROMYALGIA
     Dosage: 10MG
     Route: 048
     Dates: start: 20020101, end: 20120125
  2. ZOLPIDEM TARTRATE [Suspect]
     Indication: RESTLESS LEGS SYNDROME
     Dosage: 10MG
     Route: 048
     Dates: start: 20020101, end: 20120125

REACTIONS (2)
  - PRODUCT SUBSTITUTION ISSUE [None]
  - DRUG INEFFECTIVE [None]
